FAERS Safety Report 16754973 (Version 2)
Quarter: 2019Q3

REPORT INFORMATION
  Report Type: Spontaneous
  Country: US (occurrence: US)
  Receive Date: 20190829
  Receipt Date: 20190912
  Transmission Date: 20191005
  Serious: No
  Sender: FDA-Public Use
  Company Number: US-PFIZER INC-2019371996

PATIENT
  Age: 74 Year
  Sex: Female
  Weight: 68.27 kg

DRUGS (1)
  1. IBRANCE [Suspect]
     Active Substance: PALBOCICLIB
     Indication: BREAST CANCER METASTATIC
     Dosage: 100 MG, CYCLIC (D1-D21Q28D), (DAILY X21 DAYS, 28 DAY CYCLE)
     Route: 048
     Dates: start: 20170614, end: 201908

REACTIONS (1)
  - Neoplasm progression [Unknown]
